FAERS Safety Report 9146003 (Version 1)
Quarter: 2013Q1

REPORT INFORMATION
  Report Type: Spontaneous
  Country: US (occurrence: None)
  Receive Date: 20130227
  Receipt Date: 20130227
  Transmission Date: 20140127
  Serious: Yes (Other)
  Sender: FDA-Public Use
  Company Number: None

PATIENT
  Age: 60 Year
  Sex: Female
  Weight: 57.61 kg

DRUGS (2)
  1. EFFEXOR [Suspect]
     Indication: HOT FLUSH
     Dates: start: 20110719
  2. EFFEXOR [Suspect]
     Indication: OESTROGEN DEFICIENCY
     Dates: start: 20110719

REACTIONS (1)
  - Hepatitis acute [None]
